FAERS Safety Report 5101013-7 (Version None)
Quarter: 2006Q3

REPORT INFORMATION
  Report Type: 
  Country: None (occurrence: None)
  Receive Date: 20060906
  Receipt Date: 20060821
  Transmission Date: 20061208
  Serious: Yes (Hospitalization)
  Sender: FDA-Public Use
  Company Number: DSA_28618_2006

PATIENT
  Age: 36 Year
  Sex: Male

DRUGS (7)
  1. TAVOR [Suspect]
     Dosage: 30 TAB ONCE PO
     Route: 048
     Dates: start: 20060818, end: 20060818
  2. VENLAFAXINE HCL [Suspect]
     Dosage: 3000 MG ONCE PO
     Route: 048
     Dates: start: 20060818, end: 20060818
  3. AMITRIPTYLINE HCL [Suspect]
     Dosage: 1200 MG ONCE PO
     Route: 048
     Dates: start: 20060818, end: 20060818
  4. CLOMIPRAMINE HCL [Suspect]
     Dosage: 80 TAB ONCE PO
     Route: 048
     Dates: start: 20060818, end: 20060818
  5. REBOXETINE [Suspect]
     Dosage: 320 MG ONCE PO
     Route: 048
     Dates: start: 20060818, end: 20060818
  6. TILIDINE [Suspect]
     Dosage: 10 TAB ONCE PO
     Route: 048
     Dates: start: 20060818, end: 20060818
  7. ALCOHOL [Suspect]
     Dosage: DF ONCE PO
     Route: 048
     Dates: start: 20060818, end: 20060818

REACTIONS (7)
  - ALCOHOL POISONING [None]
  - BLOOD GASES ABNORMAL [None]
  - MULTIPLE DRUG OVERDOSE INTENTIONAL [None]
  - SOMNOLENCE [None]
  - SUICIDE ATTEMPT [None]
  - TACHYCARDIA [None]
  - VOMITING [None]
